FAERS Safety Report 25374900 (Version 2)
Quarter: 2025Q3

REPORT INFORMATION
  Report Type: Spontaneous
  Country: US (occurrence: US)
  Receive Date: 20250529
  Receipt Date: 20250725
  Transmission Date: 20251021
  Serious: Yes (Hospitalization, Other)
  Sender: Unknown Manufacturer
  Company Number: US-CYCLE PHARMACEUTICALS LTD-2025-CYC-000093

PATIENT

DRUGS (2)
  1. NITYR [Suspect]
     Active Substance: NITISINONE
     Indication: Tyrosinaemia
     Dosage: 1 MG, QD
     Route: 065
  2. NITYR [Suspect]
     Active Substance: NITISINONE
     Dosage: 1 MG, QD
     Route: 048
     Dates: start: 202506

REACTIONS (12)
  - Laryngeal dyskinesia [Unknown]
  - Weight decreased [Unknown]
  - Muscle twitching [Unknown]
  - Nausea [Unknown]
  - Vomiting [Unknown]
  - Viral infection [Unknown]
  - Product prescribing issue [Unknown]
  - Decreased appetite [Unknown]
  - Hypophagia [Unknown]
  - Pyrexia [Unknown]
  - Pigmentation disorder [Unknown]
  - Diarrhoea [Recovered/Resolved]

NARRATIVE: CASE EVENT DATE: 20250601
